FAERS Safety Report 17529368 (Version 3)
Quarter: 2020Q2

REPORT INFORMATION
  Report Type: Report from Study
  Country: IT (occurrence: IT)
  Receive Date: 20200311
  Receipt Date: 20200429
  Transmission Date: 20200713
  Serious: Yes (Hospitalization, Other)
  Sender: FDA-Public Use
  Company Number: IT-MYLANLABS-2020M1026123

PATIENT
  Age: 54 Year
  Sex: Male

DRUGS (3)
  1. SODIUM VALPROATE [Concomitant]
     Active Substance: VALPROATE SODIUM
     Dosage: UNK
  2. ARIPIPRAZOLE. [Suspect]
     Active Substance: ARIPIPRAZOLE
     Indication: PSYCHOTIC DISORDER
     Dosage: 30 MILLIGRAM, QD
     Route: 048
     Dates: start: 20190101, end: 20200117
  3. DELORAZEPAM [Suspect]
     Active Substance: DELORAZEPAM
     Indication: ANXIETY
     Dosage: 12 GTT DROPS, QD
     Route: 048
     Dates: start: 20190101, end: 20190117

REACTIONS (5)
  - Sopor [Unknown]
  - Hypotension [Unknown]
  - Confusional state [Unknown]
  - Bradycardia [Unknown]
  - Hypothermia [Unknown]

NARRATIVE: CASE EVENT DATE: 20200111
